FAERS Safety Report 12574108 (Version 2)
Quarter: 2016Q3

REPORT INFORMATION
  Report Type: Spontaneous
  Country: US (occurrence: US)
  Receive Date: 20160720
  Receipt Date: 20160909
  Transmission Date: 20161109
  Serious: Yes (Other)
  Sender: FDA-Public Use
  Company Number: US-TEVA-670266USA

PATIENT
  Sex: Female

DRUGS (9)
  1. ZECUITY [Suspect]
     Active Substance: SUMATRIPTAN SUCCINATE
     Indication: HEADACHE
     Route: 062
  2. VITAMIN B12 [Concomitant]
     Active Substance: CYANOCOBALAMIN
  3. DHEA [Concomitant]
     Active Substance: PRASTERONE
  4. ZOFRAM [Concomitant]
  5. PROGESTERONE. [Concomitant]
     Active Substance: PROGESTERONE
  6. TESTOSTERONE. [Concomitant]
     Active Substance: TESTOSTERONE
  7. SINGULAIR [Concomitant]
     Active Substance: MONTELUKAST SODIUM
  8. VALTREX [Concomitant]
     Active Substance: VALACYCLOVIR HYDROCHLORIDE
  9. XULANE [Concomitant]
     Active Substance: ETHINYL ESTRADIOL\NORELGESTROMIN
     Indication: CONTRACEPTION

REACTIONS (16)
  - Application site discolouration [Recovered/Resolved]
  - Administration site scab [Recovered/Resolved]
  - Application site paraesthesia [Recovered/Resolved]
  - Application site irritation [Recovered/Resolved]
  - Application site discomfort [Recovered/Resolved]
  - Application site exfoliation [Recovered/Resolved]
  - Application site pruritus [Recovered/Resolved]
  - Incorrect drug administration duration [Unknown]
  - Application site pain [Recovered/Resolved]
  - Drug effect incomplete [Unknown]
  - Application site inflammation [Recovered/Resolved]
  - Application site urticaria [Recovered/Resolved]
  - Application site erosion [Recovered/Resolved]
  - Application site burn [Recovered/Resolved]
  - Application site erythema [Recovered/Resolved]
  - Application site papules [Recovered/Resolved]
